APPROVED DRUG PRODUCT: METHIMAZOLE
Active Ingredient: METHIMAZOLE
Strength: 10MG
Dosage Form/Route: TABLET;ORAL
Application: A040734 | Product #002 | TE Code: AB
Applicant: HERITAGE PHARMA LABS INC
Approved: Dec 14, 2007 | RLD: No | RS: No | Type: RX